FAERS Safety Report 7534348-9 (Version None)
Quarter: 2011Q2

REPORT INFORMATION
  Report Type: 
  Country: None (occurrence: None)
  Receive Date: 20110608
  Receipt Date: 20110518
  Transmission Date: 20111010
  Serious: No
  Sender: FDA-Public Use
  Company Number: US-AMGEN-USASP2011025751

PATIENT
  Sex: Female

DRUGS (1)
  1. XGEVA [Suspect]
     Indication: NEOPLASM
     Dosage: 120 MG, Q4WK

REACTIONS (1)
  - INJECTION SITE PAIN [None]
